FAERS Safety Report 8559190-1 (Version None)
Quarter: 2012Q3

REPORT INFORMATION
  Report Type: 
  Country: None (occurrence: None)
  Receive Date: 20120720
  Receipt Date: 20120717
  Transmission Date: 20120928
  Serious: Yes (Other)
  Sender: FDA-Public Use
  Company Number: A0975893A

PATIENT
  Age: 71 Year
  Sex: Male

DRUGS (1)
  1. METHYLCELLULOSE (FORMULATION UNKNOWN) SUGAR FREE ORANGE (METHYLCELLULO [Suspect]
     Indication: FLATULENCE
     Dosage: / ORAL
     Route: 048

REACTIONS (2)
  - RECTAL HAEMORRHAGE [None]
  - DRUG ADMINISTRATION ERROR [None]
